FAERS Safety Report 6517142-7 (Version None)
Quarter: 2009Q4

REPORT INFORMATION
  Report Type: 
  Country: None (occurrence: None)
  Receive Date: 20091223
  Receipt Date: 20091214
  Transmission Date: 20100525
  Serious: Yes (Hospitalization, Other)
  Sender: FDA-Public Use
  Company Number: US-ELI_LILLY_AND_COMPANY-US200912003322

PATIENT
  Sex: Male

DRUGS (11)
  1. CYMBALTA [Suspect]
     Indication: DEPRESSION
     Dosage: 60 MG, DAILY (1/D)
     Dates: start: 20070101, end: 20091201
  2. CYMBALTA [Suspect]
     Dosage: 60 MG, QOD
     Dates: start: 20091201
  3. AMLODIPINE [Concomitant]
  4. BABY ASPIRIN [Concomitant]
  5. NEURONTIN [Concomitant]
  6. ISOSORBIDE [Concomitant]
  7. LISINOPRIL [Concomitant]
  8. MECLIZINE [Concomitant]
  9. TOPROL-XL [Concomitant]
  10. SIMVASTATIN [Concomitant]
  11. SPIRONOLACTONE [Concomitant]

REACTIONS (8)
  - CHEST PAIN [None]
  - DIZZINESS [None]
  - GAIT DISTURBANCE [None]
  - HEADACHE [None]
  - HYPERHIDROSIS [None]
  - HYPERTENSION [None]
  - LOSS OF CONSCIOUSNESS [None]
  - TREMOR [None]
